FAERS Safety Report 17883562 (Version 3)
Quarter: 2021Q1

REPORT INFORMATION
  Report Type: Other
  Country: US (occurrence: US)
  Receive Date: 20200611
  Receipt Date: 20210317
  Transmission Date: 20210419
  Serious: Yes (Hospitalization)
  Sender: FDA-Public Use
  Company Number: US-ROCHE-2615988

PATIENT
  Age: 45 Year
  Sex: Male
  Weight: 134.84 kg

DRUGS (34)
  1. INSULIN [Concomitant]
     Active Substance: INSULIN NOS
     Dosage: SYRINGE?NEEDLE U?100 1 ML 30 GAUGE X 5/16
     Dates: start: 20170509
  2. CYCLOBENZAPRINE. [Concomitant]
     Active Substance: CYCLOBENZAPRINE
     Route: 048
     Dates: start: 20171119
  3. JANUMET [Concomitant]
     Active Substance: METFORMIN HYDROCHLORIDE\SITAGLIPTIN PHOSPHATE
     Dosage: 50 MG ? 1000 MG TABLET?1 TABLET TWICE A DAY
     Route: 048
     Dates: start: 20171120
  4. DULOXETINE. [Concomitant]
     Active Substance: DULOXETINE
     Route: 048
     Dates: start: 20180206
  5. MODAFINIL. [Concomitant]
     Active Substance: MODAFINIL
     Dosage: 1 TABLET IN THE MORNING FOR 30 DAYS.
     Route: 048
     Dates: start: 20180210
  6. ROSUVASTATIN. [Concomitant]
     Active Substance: ROSUVASTATIN
     Route: 048
     Dates: start: 20180121
  7. DULOXETINE. [Concomitant]
     Active Substance: DULOXETINE
     Route: 048
     Dates: start: 20161211
  8. LEVOTHYROXINE. [Concomitant]
     Active Substance: LEVOTHYROXINE
     Dates: start: 20180206
  9. BETASERON [Concomitant]
     Active Substance: INTERFERON BETA-1B
     Route: 058
     Dates: start: 20180116
  10. GABAPENTIN. [Concomitant]
     Active Substance: GABAPENTIN
     Route: 048
     Dates: start: 20180126
  11. LEVEMIR [Concomitant]
     Active Substance: INSULIN DETEMIR
     Dosage: U?100 INSULIN 100 UNITS/ML (3 ML)
     Route: 058
     Dates: start: 20170802
  12. LORAZEPAM. [Concomitant]
     Active Substance: LORAZEPAM
     Dosage: 1 TABLET AS NEEDED AS DIRECTED
     Route: 048
     Dates: start: 20171109
  13. OCREVUS [Suspect]
     Active Substance: OCRELIZUMAB
     Indication: PRIMARY PROGRESSIVE MULTIPLE SCLEROSIS
     Dosage: DATE OF TREATMENT: 08/AUG/2018, 26/APR/2019, 13/SEP/2019, 28/OCT/2019, 29/APR/2020
     Route: 042
     Dates: start: 20180725
  14. OCREVUS [Suspect]
     Active Substance: OCRELIZUMAB
     Route: 042
  15. INSULIN [Concomitant]
     Active Substance: INSULIN NOS
     Route: 058
     Dates: start: 20171027
  16. BETASERON [Concomitant]
     Active Substance: INTERFERON BETA-1B
     Dates: start: 20171027
  17. DOXEPIN [Concomitant]
     Active Substance: DOXEPIN
     Dosage: 1 CAPSULE 3 TIMES A DAY
     Route: 048
     Dates: start: 20171027
  18. HYDROXYZINE HYDROCHLORIDE. [Concomitant]
     Active Substance: HYDROXYZINE HYDROCHLORIDE
     Route: 048
     Dates: start: 20180126
  19. VICTOZA [Concomitant]
     Active Substance: LIRAGLUTIDE
     Dosage: 3?PAK 0.6 MG/0.1 ML (18 MG/3 ML)
     Route: 058
     Dates: start: 20180201
  20. AMITRIPTYLINE [Concomitant]
     Active Substance: AMITRIPTYLINE
     Dates: start: 20180123
  21. INSULIN [Concomitant]
     Active Substance: INSULIN NOS
     Dosage: BD PEN NEEDLE UF MINI 31 GAUGE X 3/16
     Dates: start: 20171221
  22. FENOFIBRATE. [Concomitant]
     Active Substance: FENOFIBRATE
     Dates: start: 20180111
  23. LEVOTHYROXINE. [Concomitant]
     Active Substance: LEVOTHYROXINE
     Dates: start: 20171027
  24. OCREVUS [Suspect]
     Active Substance: OCRELIZUMAB
     Route: 042
  25. INSULIN [Concomitant]
     Active Substance: INSULIN NOS
     Dosage: BD PEN NEEDLE UF ORIGINAL 29 GAUGE X 1/2
     Dates: start: 20171030
  26. JARDIANCE [Concomitant]
     Active Substance: EMPAGLIFLOZIN
     Dates: start: 20180131
  27. LEVETIRACETAM. [Concomitant]
     Active Substance: LEVETIRACETAM
     Indication: EPILEPSY
     Dosage: 1 TABLET TWICE A DAY FOR 30 DAYS
     Route: 048
     Dates: start: 20180209
  28. LISINOPRIL. [Concomitant]
     Active Substance: LISINOPRIL
     Route: 048
     Dates: start: 20180126
  29. METFORMIN [Concomitant]
     Active Substance: METFORMIN HYDROCHLORIDE
     Dates: start: 20171206
  30. TRULICITY [Concomitant]
     Active Substance: DULAGLUTIDE
     Dosage: 0.75 MG/0.5 ML
     Route: 058
     Dates: start: 20171219
  31. VITAMIN D3 [Concomitant]
     Active Substance: CHOLECALCIFEROL
     Dates: start: 20171027
  32. FENOFIBRATE. [Concomitant]
     Active Substance: FENOFIBRATE
     Dates: start: 20171027
  33. GLIMEPIRIDE. [Concomitant]
     Active Substance: GLIMEPIRIDE
     Dosage: 1 TABLET
     Route: 048
     Dates: start: 20171206
  34. LEVEMIR [Concomitant]
     Active Substance: INSULIN DETEMIR
     Dosage: U?100 INSULIN 100 UNITS/ML (3 ML)
     Route: 058
     Dates: start: 20180119

REACTIONS (12)
  - Chills [Recovered/Resolved]
  - Fatigue [Unknown]
  - Skin laceration [Unknown]
  - Myalgia [Recovered/Resolved]
  - Intervertebral disc protrusion [Not Recovered/Not Resolved]
  - Sleep disorder [Unknown]
  - Swelling [Recovered/Resolved]
  - Pain [Not Recovered/Not Resolved]
  - Fall [Unknown]
  - Nervous system disorder [Not Recovered/Not Resolved]
  - Localised infection [Recovered/Resolved]
  - Asthenia [Not Recovered/Not Resolved]

NARRATIVE: CASE EVENT DATE: 2019
